FAERS Safety Report 4483117-5 (Version None)
Quarter: 2004Q3

REPORT INFORMATION
  Report Type: 
  Country: None (occurrence: None)
  Receive Date: 20040921
  Receipt Date: 20040604
  Transmission Date: 20050211
  Serious: Yes (Hospitalization)
  Sender: FDA-Public Use
  Company Number: 163-20785-04060301

PATIENT
  Age: 38 Year
  Sex: Female

DRUGS (13)
  1. THALOMID [Suspect]
     Indication: MULTIPLE MYELOMA
     Dosage: 50 MG, DAILY, ORAL
     Route: 048
     Dates: start: 20030515, end: 20030730
  2. DEXAMETHASONE [Suspect]
     Indication: MULTIPLE MYELOMA
     Dates: start: 19981107, end: 20010305
  3. CYCLOPHOSPHAMIDE [Suspect]
     Indication: MULTIPLE MYELOMA
     Dates: start: 19981215, end: 20010305
  4. ETOPOSIDE [Suspect]
     Indication: MULTIPLE MYELOMA
     Dates: start: 19981215, end: 20010305
  5. CISPLATIN [Suspect]
     Indication: MULTIPLE MYELOMA
     Dates: start: 19981215, end: 20010305
  6. ADRIAMYCIN PFS [Suspect]
     Indication: MULTIPLE MYELOMA
     Dates: start: 19981107, end: 20010305
  7. VINCRISTINE [Suspect]
     Indication: MULTIPLE MYELOMA
     Dates: start: 19981107, end: 19981107
  8. INTERFERON (INTERFERON) (UNKNOWN) [Concomitant]
  9. HEPARIN [Concomitant]
  10. SYNTHROID [Concomitant]
  11. ACYCLOVIR (ACICLOVIR) (UNKNOWN) [Concomitant]
  12. AREDIA (PAMIDRONATE DISODIUM) (UNKNOWN) [Concomitant]
  13. CLARITIN (LORATADINE) (UNKNOWN) [Concomitant]

REACTIONS (1)
  - DEEP VEIN THROMBOSIS [None]
